FAERS Safety Report 5682816-7 (Version None)
Quarter: 2008Q1

REPORT INFORMATION
  Report Type: 
  Country: None (occurrence: None)
  Receive Date: 20080327
  Receipt Date: 20080318
  Transmission Date: 20080703
  Serious: Yes (Other)
  Sender: FDA-Public Use
  Company Number: A0701455A

PATIENT
  Age: 42 Year
  Sex: Male

DRUGS (4)
  1. LAMICTAL [Suspect]
     Indication: BIPOLAR DISORDER
     Dosage: 400MG PER DAY
     Route: 048
     Dates: start: 20060101
  2. GLYBURIDE [Concomitant]
  3. DICLOFENAC SODIUM [Concomitant]
  4. COZAAR [Concomitant]

REACTIONS (2)
  - DEPRESSION [None]
  - MANIA [None]
